FAERS Safety Report 12199919 (Version 1)
Quarter: 2016Q1

REPORT INFORMATION
  Report Type: Spontaneous
  Country: US (occurrence: US)
  Receive Date: 20160322
  Receipt Date: 20160322
  Transmission Date: 20160526
  Serious: No
  Sender: FDA-Public Use
  Company Number: US-OMEROS CORPORATION-2015OME00006

PATIENT

DRUGS (1)
  1. OMIDRIA [Suspect]
     Active Substance: KETOROLAC\PHENYLEPHRINE
     Indication: CATARACT OPERATION
     Dosage: UNK
     Dates: start: 20151201, end: 20151201

REACTIONS (1)
  - Drug effect prolonged [Unknown]

NARRATIVE: CASE EVENT DATE: 20151201
